FAERS Safety Report 13011194 (Version 3)
Quarter: 2018Q4

REPORT INFORMATION
  Report Type: Report from Study
  Country: JP (occurrence: JP)
  Receive Date: 20161208
  Receipt Date: 20181228
  Transmission Date: 20190204
  Serious: No
  Sender: FDA-Public Use
  Company Number: JP-B.I. PHARMACEUTICALS,INC./RIDGEFIELD-2016-NB-001158

PATIENT
  Age: 38 Year
  Sex: Female
  Weight: 85.1 kg

DRUGS (7)
  1. NOVORAPID [Concomitant]
     Active Substance: INSULIN ASPART
     Route: 065
     Dates: start: 20171128
  2. TRULICITY [Concomitant]
     Active Substance: DULAGLUTIDE
     Indication: TYPE 2 DIABETES MELLITUS
     Route: 058
     Dates: start: 20170701
  3. EMPAGLIFLOZIN [Suspect]
     Active Substance: EMPAGLIFLOZIN
     Route: 048
     Dates: start: 20160815
  4. TAPROS [Concomitant]
     Indication: PRODUCT USED FOR UNKNOWN INDICATION
     Route: 050
  5. TRESIBA [Concomitant]
     Active Substance: INSULIN DEGLUDEC
     Indication: TYPE 2 DIABETES MELLITUS
     Route: 065
     Dates: end: 20171127
  6. EMPAGLIFLOZIN [Suspect]
     Active Substance: EMPAGLIFLOZIN
     Indication: TYPE 2 DIABETES MELLITUS
     Route: 048
     Dates: start: 20160713, end: 20160814
  7. NOVORAPID [Concomitant]
     Active Substance: INSULIN ASPART
     Indication: TYPE 2 DIABETES MELLITUS
     Route: 065
     Dates: start: 20160713

REACTIONS (5)
  - Red blood cell count increased [Not Recovered/Not Resolved]
  - Urine ketone body present [Recovered/Resolved]
  - Left ventricular hypertrophy [Not Recovered/Not Resolved]
  - Albumin urine present [Recovered/Resolved]
  - Hypertension [Not Recovered/Not Resolved]

NARRATIVE: CASE EVENT DATE: 20160810
